FAERS Safety Report 4580015-3 (Version None)
Quarter: 2005Q1

REPORT INFORMATION
  Report Type: 
  Country: None (occurrence: None)
  Receive Date: 20050210
  Receipt Date: 20050201
  Transmission Date: 20050727
  Serious: Yes (Hospitalization)
  Sender: FDA-Public Use
  Company Number: 2004-08-0704

PATIENT
  Age: 42 Year
  Sex: Male
  Weight: 73.0291 kg

DRUGS (3)
  1. PEG-INTRON [Suspect]
     Indication: HEPATITIS C
     Dosage: 64 MCG QWK SUBCUTANEOUS
     Route: 058
     Dates: start: 20040726
  2. REBETOL [Suspect]
     Indication: HEPATITIS C
     Dosage: 800 MG QD ORAL
     Route: 048
     Dates: start: 20040726
  3. VICODIN [Concomitant]

REACTIONS (4)
  - ARTHRALGIA [None]
  - BLOOD BILIRUBIN INCREASED [None]
  - CHOLECYSTITIS [None]
  - OEDEMA PERIPHERAL [None]
